FAERS Safety Report 5118832-3 (Version None)
Quarter: 2006Q3

REPORT INFORMATION
  Report Type: 
  Country: None (occurrence: None)
  Receive Date: 20060801
  Receipt Date: 20060501
  Transmission Date: 20061208
  Serious: Yes (Other)
  Sender: FDA-Public Use
  Company Number: 446554

PATIENT
  Sex: Female

DRUGS (1)
  1. BONIVA [Suspect]
     Indication: OSTEOPOROSIS
     Dosage: 3 MG
     Dates: start: 20060415

REACTIONS (6)
  - ARTHRALGIA [None]
  - BACK PAIN [None]
  - EYE SWELLING [None]
  - HEADACHE [None]
  - LIP SWELLING [None]
  - SWELLING FACE [None]
